FAERS Safety Report 6039504-7 (Version None)
Quarter: 2009Q1

REPORT INFORMATION
  Report Type: 
  Country: None (occurrence: None)
  Receive Date: 20090114
  Receipt Date: 20090105
  Transmission Date: 20090719
  Serious: No
  Sender: FDA-Public Use
  Company Number: US025254

PATIENT
  Age: 27 Year
  Sex: Female
  Weight: 61.2356 kg

DRUGS (7)
  1. FENTORA [Suspect]
     Indication: BONE PAIN
     Dosage: 800 UG QD BUCCAL
     Route: 002
     Dates: start: 20070101
  2. DILAUDID [Concomitant]
  3. BUPIVACAINE [Concomitant]
  4. CLONIDINE [Concomitant]
  5. SYNTHROID [Concomitant]
  6. ACCUTANE [Concomitant]
  7. TORADOL [Concomitant]

REACTIONS (1)
  - DRUG INEFFECTIVE [None]
